FAERS Safety Report 9250728 (Version 1)
Quarter: 2013Q1

REPORT INFORMATION
  Report Type: Spontaneous
  Country: US (occurrence: None)
  Receive Date: 20130305
  Receipt Date: 20130305
  Transmission Date: 20140127
  Serious: Yes (Life-Threatening, Hospitalization, Other)
  Sender: FDA-Public Use
  Company Number: 163-21800-12100807

PATIENT
  Age: 72 Year
  Sex: Female

DRUGS (8)
  1. REVLIMID [Suspect]
     Indication: PLASMA CELL MYELOMA
     Route: 048
     Dates: start: 20110524
  2. CENTRUM (CENTRUM) [Concomitant]
  3. DECADRON (DEXAMETHASONE) [Concomitant]
  4. LEVOXYL (LEVOTHYROXINE SODIUM) [Concomitant]
  5. POTASSIUM (POTASSIUM) [Concomitant]
  6. TARKA (UDRAMIL) [Concomitant]
  7. ZOLINZA (VORINOSTAT) [Concomitant]
  8. COMPLEX (BECOSYM PORTE) [Concomitant]

REACTIONS (1)
  - Pulmonary embolism [None]
